FAERS Safety Report 5415961-1 (Version None)
Quarter: 2007Q3

REPORT INFORMATION
  Report Type: 
  Country: None (occurrence: None)
  Receive Date: 20070718
  Receipt Date: 20070104
  Transmission Date: 20080115
  Serious: Yes (Death, Other)
  Sender: FDA-Public Use
  Company Number: 2007002123

PATIENT
  Sex: Male

DRUGS (2)
  1. CELEBREX [Suspect]
  2. VIOXX [Suspect]

REACTIONS (1)
  - MYOCARDIAL INFARCTION [None]
